FAERS Safety Report 16333887 (Version 1)
Quarter: 2019Q2

REPORT INFORMATION
  Report Type: Spontaneous
  Country: IN (occurrence: IN)
  Receive Date: 20190520
  Receipt Date: 20190520
  Transmission Date: 20190711
  Serious: Yes (Other)
  Sender: FDA-Public Use
  Company Number: IN-JNJFOC-20190514307

PATIENT
  Age: 6 Year
  Sex: Male

DRUGS (2)
  1. DOXORUBICIN HYDROCHLORIDE. [Suspect]
     Active Substance: DOXORUBICIN HYDROCHLORIDE
     Indication: FOCAL NODULAR HYPERPLASIA
     Route: 065
  2. VINCRISTINE [Suspect]
     Active Substance: VINCRISTINE
     Indication: FOCAL NODULAR HYPERPLASIA
     Route: 065

REACTIONS (3)
  - Off label use [Unknown]
  - Tumour necrosis [Recovered/Resolved]
  - Product use in unapproved indication [Unknown]
